FAERS Safety Report 18415881 (Version 1)
Quarter: 2020Q4

REPORT INFORMATION
  Report Type: Spontaneous
  Country: US (occurrence: US)
  Receive Date: 20201022
  Receipt Date: 20201022
  Transmission Date: 20210114
  Serious: Yes (Hospitalization)
  Sender: FDA-Public Use
  Company Number: None

PATIENT
  Age: 34 Year
  Sex: Female

DRUGS (6)
  1. PROMETHAZINE 25MG [Concomitant]
     Dates: start: 20201015, end: 20201022
  2. LETROZOLE 2.5MG [Concomitant]
     Active Substance: LETROZOLE
     Dates: start: 20200831
  3. FLUOXETINE [Concomitant]
     Active Substance: FLUOXETINE HYDROCHLORIDE
     Dates: start: 20200902
  4. PROGESTERONE. [Suspect]
     Active Substance: PROGESTERONE
     Indication: INFERTILITY FEMALE
     Dosage: ?          OTHER FREQUENCY:NIGHTLY;?
     Route: 058
     Dates: start: 20200709
  5. LORAZEPAM 1MG [Concomitant]
     Active Substance: LORAZEPAM
     Dates: start: 20201012
  6. AMPHET/DEXTR 20MG [Concomitant]
     Dates: start: 20201008

REACTIONS (4)
  - Nausea [None]
  - Therapy interrupted [None]
  - Vomiting [None]
  - Exposure during pregnancy [None]

NARRATIVE: CASE EVENT DATE: 20201016
